FAERS Safety Report 9563908 (Version 1)
Quarter: 2013Q3

REPORT INFORMATION
  Report Type: Spontaneous
  Country: US (occurrence: US)
  Receive Date: 20130927
  Receipt Date: 20130927
  Transmission Date: 20140515
  Serious: No
  Sender: FDA-Public Use
  Company Number: US-009507513-1309USA013183

PATIENT
  Age: 52 Year
  Sex: Female

DRUGS (1)
  1. PROPECIA [Suspect]
     Indication: ALOPECIA

REACTIONS (3)
  - Alopecia [Unknown]
  - Stress [Unknown]
  - Drug administration error [Unknown]
